FAERS Safety Report 19732767 (Version 1)
Quarter: 2021Q3

REPORT INFORMATION
  Report Type: Spontaneous
  Country: US (occurrence: US)
  Receive Date: 20210821
  Receipt Date: 20210821
  Transmission Date: 20211014
  Serious: Yes (Disabling)
  Sender: FDA-Public Use
  Company Number: None

PATIENT
  Age: 75 Year
  Sex: Male
  Weight: 87.75 kg

DRUGS (1)
  1. BAMLANIVIMAB. [Suspect]
     Active Substance: BAMLANIVIMAB
     Indication: COVID-19
     Dosage: ?          QUANTITY:1 1;OTHER FREQUENCY:1;?
     Route: 042
     Dates: start: 20201208, end: 20201208

REACTIONS (2)
  - Dysstasia [None]
  - Balance disorder [None]

NARRATIVE: CASE EVENT DATE: 20210315
